FAERS Safety Report 7885418-7 (Version None)
Quarter: 2011Q4

REPORT INFORMATION
  Report Type: 
  Country: None (occurrence: None)
  Receive Date: 20111102
  Receipt Date: 20111026
  Transmission Date: 20120403
  Serious: Yes (Other)
  Sender: FDA-Public Use
  Company Number: CH-BAXTER-2011BH034633

PATIENT
  Age: 23 Year
  Sex: Female

DRUGS (7)
  1. VINCRISTINE SULFATE [Suspect]
     Indication: ACUTE LYMPHOCYTIC LEUKAEMIA
     Route: 065
  2. TAZOBAC [Concomitant]
     Indication: AGRANULOCYTOSIS
     Route: 065
  3. CEFEPIME [Concomitant]
     Indication: AGRANULOCYTOSIS
     Route: 065
  4. AMOXICILLIN [Concomitant]
     Indication: AGRANULOCYTOSIS
     Route: 065
  5. CYCLOPHOSPHAMIDE [Suspect]
     Indication: ACUTE LYMPHOCYTIC LEUKAEMIA
     Route: 065
  6. IDARUBICIN HCL [Suspect]
     Indication: ACUTE LYMPHOCYTIC LEUKAEMIA
     Route: 065
  7. PREDNISONE [Suspect]
     Indication: ACUTE LYMPHOCYTIC LEUKAEMIA
     Route: 065

REACTIONS (4)
  - PREMATURE DELIVERY [None]
  - AGRANULOCYTOSIS [None]
  - PYREXIA [None]
  - MATERNAL EXPOSURE DURING PREGNANCY [None]
